FAERS Safety Report 14753480 (Version 1)
Quarter: 2018Q2

REPORT INFORMATION
  Report Type: Spontaneous
  Country: FR (occurrence: FR)
  Receive Date: 20180412
  Receipt Date: 20180412
  Transmission Date: 20180711
  Serious: Yes (Other)
  Sender: FDA-Public Use
  Company Number: FR-BAUSCH-BL-2018-010477

PATIENT
  Sex: Male

DRUGS (2)
  1. MYCOSTER [Suspect]
     Active Substance: CICLOPIROX\CICLOPIROX OLAMINE
     Indication: PRODUCT USED FOR UNKNOWN INDICATION
     Route: 065
  2. BALSAM PERU [Suspect]
     Active Substance: BALSAM PERU
     Indication: PRODUCT USED FOR UNKNOWN INDICATION
     Dosage: BALM
     Route: 065

REACTIONS (1)
  - Therapeutic product cross-reactivity [Unknown]
